FAERS Safety Report 6377638-8 (Version None)
Quarter: 2009Q3

REPORT INFORMATION
  Report Type: 
  Country: None (occurrence: None)
  Receive Date: 20090925
  Receipt Date: 20090911
  Transmission Date: 20100115
  Serious: Yes (Other)
  Sender: FDA-Public Use
  Company Number: CHNY2009DE03415

PATIENT
  Sex: Male
  Weight: 79 kg

DRUGS (3)
  1. SCOPODERM TTS (NCH) [Suspect]
     Indication: MOTION SICKNESS
     Dosage: 1 DF, Q72H
     Route: 062
     Dates: start: 20090815, end: 20090823
  2. VOMEX A ^ENDOPHARM^ [Concomitant]
     Dosage: UNK
     Dates: start: 20090815, end: 20090823
  3. NOVOTHYRAL [Concomitant]
     Dosage: 75 UNK, QD

REACTIONS (9)
  - BALANCE DISORDER [None]
  - CHILLS [None]
  - DIZZINESS [None]
  - DRY MOUTH [None]
  - HEADACHE [None]
  - HYPERHIDROSIS [None]
  - MALAISE [None]
  - NAUSEA [None]
  - VOMITING [None]
